FAERS Safety Report 10424586 (Version 2)
Quarter: 2014Q4

REPORT INFORMATION
  Report Type: Spontaneous
  Country: US (occurrence: None)
  Receive Date: 20140725
  Receipt Date: 20141023
  Transmission Date: 20150528
  Serious: No
  Sender: FDA-Public Use
  Company Number: AP356-00887-SPO-US

PATIENT
  Age: 65 Year
  Sex: Female
  Weight: 109 kg

DRUGS (10)
  1. BELVIQ [Suspect]
     Active Substance: LORCASERIN HYDROCHLORIDE
     Indication: OBESITY
     Route: 048
     Dates: start: 20140605, end: 20140609
  2. WELLBUTRIN(BUPROPION) [Concomitant]
  3. ASPIRIN (ACETYLSALICYLIC ACID) [Concomitant]
     Active Substance: ASPIRIN
  4. ANTIVERT (MECLOZINE HYDROCHLORIDE) [Concomitant]
  5. METOPROLOL [Concomitant]
     Active Substance: METOPROLOL
  6. PRILOSEC (OMEPRAZOLE SODIUM) [Concomitant]
  7. COZAAR [Concomitant]
     Active Substance: LOSARTAN POTASSIUM
  8. LOVASTATIN. [Concomitant]
     Active Substance: LOVASTATIN
  9. MECLIZINE [Concomitant]
     Active Substance: MECLIZINE\MECLIZINE HYDROCHLORIDE
  10. LIPITOR [Concomitant]
     Active Substance: ATORVASTATIN CALCIUM

REACTIONS (3)
  - Fatigue [None]
  - Abdominal pain upper [None]
  - Nausea [None]

NARRATIVE: CASE EVENT DATE: 20140609
